FAERS Safety Report 6341067-3 (Version None)
Quarter: 2009Q3

REPORT INFORMATION
  Report Type: 
  Country: None (occurrence: None)
  Receive Date: 20090904
  Receipt Date: 20090901
  Transmission Date: 20100115
  Serious: Yes (Hospitalization)
  Sender: FDA-Public Use
  Company Number: A0805784A

PATIENT
  Age: 41 Year
  Sex: Male

DRUGS (2)
  1. AVANDIA [Suspect]
     Dosage: 4MG PER DAY
     Route: 048
     Dates: start: 20050419, end: 20070521
  2. AVANDAMET [Suspect]
     Dosage: 1000MG TWICE PER DAY
     Route: 048
     Dates: start: 20040920, end: 20050419

REACTIONS (1)
  - MYOCARDIAL INFARCTION [None]
